FAERS Safety Report 19824295 (Version 1)
Quarter: 2021Q3

REPORT INFORMATION
  Report Type: Spontaneous
  Country: US (occurrence: US)
  Receive Date: 20210913
  Receipt Date: 20210913
  Transmission Date: 20211014
  Serious: Yes (Other)
  Sender: FDA-Public Use
  Company Number: US-TAKEDA-2021TUS055956

PATIENT

DRUGS (4)
  1. PFIZER?BIONTECH COVID?19 VACCINE [Suspect]
     Active Substance: TOZINAMERAN
     Indication: PRODUCT USED FOR UNKNOWN INDICATION
     Dosage: UNK
     Route: 065
     Dates: start: 20210827
  2. GAMMAGARD LIQUID [Suspect]
     Active Substance: HUMAN IMMUNOGLOBULIN G
     Indication: PRODUCT USED FOR UNKNOWN INDICATION
     Dosage: UNK
     Route: 065
  3. GAMMAGARD S/D [Suspect]
     Active Substance: HUMAN IMMUNOGLOBULIN G
     Indication: PRODUCT USED FOR UNKNOWN INDICATION
     Dosage: UNK
     Route: 065
  4. GAMMAGARD S/D [Suspect]
     Active Substance: HUMAN IMMUNOGLOBULIN G
     Indication: PRODUCT USED FOR UNKNOWN INDICATION
     Dosage: UNK
     Route: 065

REACTIONS (15)
  - Chills [Unknown]
  - Nervousness [Unknown]
  - Heart rate decreased [Unknown]
  - Immunodeficiency [Unknown]
  - Nasopharyngitis [Unknown]
  - Tremor [Unknown]
  - Heart rate increased [Unknown]
  - Asthenia [Unknown]
  - Diarrhoea [Unknown]
  - Fatigue [Unknown]
  - Feeling cold [Unknown]
  - Respiratory rate increased [Unknown]
  - COVID-19 immunisation [Unknown]
  - Insomnia [Unknown]
  - Eating disorder [Unknown]

NARRATIVE: CASE EVENT DATE: 20210831
